FAERS Safety Report 4771669-7 (Version None)
Quarter: 2005Q3

REPORT INFORMATION
  Report Type: 
  Country: None (occurrence: None)
  Receive Date: 20050912
  Receipt Date: 20050830
  Transmission Date: 20060218
  Serious: Yes (Other)
  Sender: FDA-Public Use
  Company Number: THYM-10615

PATIENT
  Age: 64 Year
  Sex: Female
  Weight: 75.2 kg

DRUGS (17)
  1. THYMOGLOBULIN [Suspect]
     Indication: PROPHYLAXIS AGAINST TRANSPLANT REJECTION
     Dosage: 117 MG QD IV
     Route: 042
     Dates: start: 20050625, end: 20050626
  2. MESNA [Concomitant]
  3. CYCLOPHOSPHAMIDE [Concomitant]
  4. METHYLPREDNISOLONE [Concomitant]
  5. PHENYTOIN [Concomitant]
  6. POTASSIUM [Concomitant]
  7. MAGNESIUM SULFATE [Concomitant]
  8. LEVOFLOXACIN [Concomitant]
  9. LANSOPRAZOLE [Concomitant]
  10. GRANISETRON [Concomitant]
  11. ACETAMINOPHEN [Concomitant]
  12. BENADRYL [Concomitant]
  13. CEPHALEXN [Concomitant]
  14. DEXTROSE 5% [Concomitant]
  15. DIPHENHYDRAMINE HCL [Concomitant]
  16. LORAZEPAM [Concomitant]
  17. FUROSEMIDE [Concomitant]

REACTIONS (6)
  - BLOOD PRESSURE DECREASED [None]
  - HEADACHE [None]
  - HEART RATE INCREASED [None]
  - INFUSION RELATED REACTION [None]
  - PNEUMONITIS [None]
  - TRANSAMINASES INCREASED [None]
